FAERS Safety Report 14945697 (Version 1)
Quarter: 2018Q2

REPORT INFORMATION
  Report Type: Spontaneous
  Country: US (occurrence: US)
  Receive Date: 20180529
  Receipt Date: 20180529
  Transmission Date: 20180711
  Serious: Yes (Life-Threatening)
  Sender: FDA-Public Use
  Company Number: US-ROCHE-2084264

PATIENT
  Sex: Male
  Weight: 81.27 kg

DRUGS (1)
  1. XOLAIR [Suspect]
     Active Substance: OMALIZUMAB
     Indication: CHRONIC SPONTANEOUS URTICARIA
     Route: 030
     Dates: start: 20171106, end: 20180423

REACTIONS (2)
  - Incorrect route of drug administration [Unknown]
  - Paraesthesia [Not Recovered/Not Resolved]
